FAERS Safety Report 6342911-6 (Version None)
Quarter: 2009Q3

REPORT INFORMATION
  Report Type: 
  Country: None (occurrence: None)
  Receive Date: 20090821
  Receipt Date: 20090721
  Transmission Date: 20100115
  Serious: No
  Sender: FDA-Public Use
  Company Number: 8047619

PATIENT
  Sex: Male
  Weight: 105.4 kg

DRUGS (7)
  1. CIMZIA [Suspect]
     Indication: CROHN'S DISEASE
     Dosage: 400 MG SC
     Route: 058
     Dates: start: 20081208, end: 20090616
  2. PREVACID [Concomitant]
  3. MELOXICAM [Concomitant]
  4. WATER PILL [Concomitant]
  5. CALTRATE + D [Concomitant]
  6. ASPIRIN [Concomitant]
  7. ULTRAM [Concomitant]

REACTIONS (4)
  - ASTHENIA [None]
  - PHOTOSENSITIVITY REACTION [None]
  - RASH [None]
  - WEIGHT INCREASED [None]
